FAERS Safety Report 17433937 (Version 1)
Quarter: 2020Q1

REPORT INFORMATION
  Report Type: Spontaneous
  Country: US (occurrence: US)
  Receive Date: 20200219
  Receipt Date: 20200219
  Transmission Date: 20200409
  Serious: No
  Sender: FDA-Public Use
  Company Number: US-ALKEM LABORATORIES LIMITED-US-ALKEM-2019-09857

PATIENT
  Sex: Male

DRUGS (1)
  1. SILVER SULFADIAZINE. [Suspect]
     Active Substance: SILVER SULFADIAZINE
     Indication: SEPSIS
     Dosage: UNK
     Route: 065

REACTIONS (3)
  - Skin irritation [Unknown]
  - Product use in unapproved indication [Unknown]
  - Erythema [Unknown]
